FAERS Safety Report 8168806-3 (Version None)
Quarter: 2012Q1

REPORT INFORMATION
  Report Type: 
  Country: None (occurrence: None)
  Receive Date: 20120227
  Receipt Date: 20120217
  Transmission Date: 20120608
  Serious: Yes (Hospitalization)
  Sender: FDA-Public Use
  Company Number: BR-ASTRAZENECA-2012SE12124

PATIENT
  Age: 70 Year
  Sex: Female
  Weight: 62 kg

DRUGS (2)
  1. SYMBICORT [Suspect]
     Dosage: 320/9 MCG, DAILY
     Route: 055
  2. SYMBICORT [Suspect]
     Indication: ASTHMA
     Dosage: 160/4.5 MCG, DAILY
     Route: 055
     Dates: start: 20080101

REACTIONS (2)
  - AORTIC VALVE STENOSIS [None]
  - DYSPNOEA [None]
